FAERS Safety Report 17447110 (Version 2)
Quarter: 2020Q1

REPORT INFORMATION
  Report Type: Report from Study
  Country: GR (occurrence: GR)
  Receive Date: 20200221
  Receipt Date: 20200303
  Transmission Date: 20200409
  Serious: Yes (Other)
  Sender: FDA-Public Use
  Company Number: GR-JNJFOC-20200221400

PATIENT
  Sex: Male

DRUGS (4)
  1. PAROXETINE. [Concomitant]
     Active Substance: PAROXETINE
  2. BUPROPION. [Concomitant]
     Active Substance: BUPROPION
  3. SPRAVATO [Suspect]
     Active Substance: ESKETAMINE
     Indication: DEPRESSION
  4. LITHIUM CARBONATE. [Concomitant]
     Active Substance: LITHIUM CARBONATE

REACTIONS (4)
  - Off label use [Unknown]
  - Drug ineffective [Unknown]
  - Suicidal ideation [Unknown]
  - Inappropriate schedule of product administration [Unknown]

NARRATIVE: CASE EVENT DATE: 20200206
